FAERS Safety Report 13033229 (Version 1)
Quarter: 2016Q4

REPORT INFORMATION
  Report Type: Spontaneous
  Country: TR (occurrence: TR)
  Receive Date: 20161216
  Receipt Date: 20161216
  Transmission Date: 20170207
  Serious: Yes (Hospitalization, Other)
  Sender: FDA-Public Use
  Company Number: TR-CIPLA LTD.-2016TR23394

PATIENT

DRUGS (2)
  1. RISPERIDONE. [Suspect]
     Active Substance: RISPERIDONE
     Dosage: UNK, FOR A WEEK
     Route: 065
  2. CLOMIPRAMINE [Interacting]
     Active Substance: CLOMIPRAMINE
     Dosage: 75 MG, 9 PILLS IN ONE DAY
     Route: 065

REACTIONS (5)
  - Treatment noncompliance [Unknown]
  - Intentional overdose [Unknown]
  - Serotonin syndrome [Recovered/Resolved]
  - Suicide attempt [Unknown]
  - Drug interaction [Unknown]
